FAERS Safety Report 7323728-2 (Version None)
Quarter: 2011Q1

REPORT INFORMATION
  Report Type: 
  Country: None (occurrence: None)
  Receive Date: 20110301
  Receipt Date: 20110221
  Transmission Date: 20110831
  Serious: Yes (Other)
  Sender: FDA-Public Use
  Company Number: B0702469A

PATIENT
  Sex: Male

DRUGS (1)
  1. CIGANON CQ1 [Suspect]
     Indication: SMOKING CESSATION THERAPY
     Dosage: 1PAT PER DAY
     Route: 062
     Dates: start: 20110201, end: 20110219

REACTIONS (6)
  - DIZZINESS [None]
  - FALL [None]
  - RESPIRATORY DISTRESS [None]
  - COUGH [None]
  - FEELING COLD [None]
  - CHEST DISCOMFORT [None]
